FAERS Safety Report 19570363 (Version 1)
Quarter: 2021Q3

REPORT INFORMATION
  Report Type: Spontaneous
  Country: DE (occurrence: DE)
  Receive Date: 20210716
  Receipt Date: 20210716
  Transmission Date: 20211014
  Serious: Yes (Hospitalization)
  Sender: FDA-Public Use
  Company Number: NVSC2021DE152959

PATIENT
  Age: 13 Year
  Sex: Male
  Weight: 47 kg

DRUGS (6)
  1. ELVANSE [Suspect]
     Active Substance: LISDEXAMFETAMINE DIMESYLATE
     Indication: ATTENTION DEFICIT HYPERACTIVITY DISORDER
     Dosage: 60 MG, QD
     Route: 065
     Dates: start: 2017
  2. ATTENTIN [DEXAMFETAMINE SULFATE] [Suspect]
     Active Substance: DEXTROAMPHETAMINE SULFATE
     Indication: ATTENTION DEFICIT HYPERACTIVITY DISORDER
     Dosage: 10 MG, QD
     Route: 065
     Dates: start: 2019, end: 20200821
  3. ATTENTIN [DEXAMFETAMINE SULFATE] [Suspect]
     Active Substance: DEXTROAMPHETAMINE SULFATE
     Indication: IMPULSE-CONTROL DISORDER
  4. RISPERIDONE. [Suspect]
     Active Substance: RISPERIDONE
     Indication: ATTENTION DEFICIT HYPERACTIVITY DISORDER
     Dosage: 1 MG, BID
     Route: 065
     Dates: start: 2017, end: 202009
  5. RISPERIDONE. [Suspect]
     Active Substance: RISPERIDONE
     Indication: IMPULSE-CONTROL DISORDER
  6. ELVANSE [Suspect]
     Active Substance: LISDEXAMFETAMINE DIMESYLATE
     Indication: IMPULSE-CONTROL DISORDER

REACTIONS (6)
  - Aspartate aminotransferase increased [Recovered/Resolved]
  - Liver disorder [Recovered/Resolved]
  - Hepatic enzyme increased [Recovered/Resolved]
  - Alanine aminotransferase increased [Recovered/Resolved]
  - Product use issue [Recovered/Resolved]
  - Gamma-glutamyltransferase increased [Recovered/Resolved]

NARRATIVE: CASE EVENT DATE: 20200820
